FAERS Safety Report 8111918-0 (Version None)
Quarter: 2012Q1

REPORT INFORMATION
  Report Type: 
  Country: None (occurrence: None)
  Receive Date: 20120203
  Receipt Date: 20110414
  Transmission Date: 20120608
  Serious: No
  Sender: FDA-Public Use
  Company Number: US-GLAXOSMITHKLINE-A0923008A

PATIENT
  Age: 57 Year
  Sex: Female

DRUGS (9)
  1. ARIXTRA [Suspect]
     Indication: DEEP VEIN THROMBOSIS
     Dosage: 10MG PER DAY
     Route: 058
  2. DIOVAN HCT [Concomitant]
  3. CELEBREX [Concomitant]
  4. FLUOXETINE [Concomitant]
  5. SIMVASTATIN [Concomitant]
  6. AMLODIPINE [Concomitant]
  7. HYDROCODONE BITARTRATE [Concomitant]
  8. FELBATOL [Concomitant]
  9. VITAMIN B-12 [Concomitant]

REACTIONS (2)
  - INJECTION SITE PAIN [None]
  - PRODUCT QUALITY ISSUE [None]
